FAERS Safety Report 15126745 (Version 1)
Quarter: 2018Q3

REPORT INFORMATION
  Report Type: Spontaneous
  Country: US (occurrence: US)
  Receive Date: 20180710
  Receipt Date: 20180710
  Transmission Date: 20181010
  Serious: Yes (Disabling)
  Sender: FDA-Public Use
  Company Number: US-GUERBET-US-20180171

PATIENT
  Sex: Male

DRUGS (2)
  1. OPTIMARK [Suspect]
     Active Substance: GADOVERSETAMIDE
     Indication: NUCLEAR MAGNETIC RESONANCE IMAGING
     Route: 065
  2. MULTIHANCE [Suspect]
     Active Substance: GADOBENATE DIMEGLUMINE
     Indication: NUCLEAR MAGNETIC RESONANCE IMAGING
     Route: 065

REACTIONS (11)
  - Contrast media deposition [Unknown]
  - Skin induration [Unknown]
  - Medication residue present [Unknown]
  - Pain [Unknown]
  - Gait disturbance [Unknown]
  - Skin tightness [Unknown]
  - Burning sensation [Unknown]
  - Emotional distress [Unknown]
  - Fibrosis [Unknown]
  - Cognitive disorder [Unknown]
  - Anxiety [Unknown]
